FAERS Safety Report 10547937 (Version 1)
Quarter: 2014Q4

REPORT INFORMATION
  Report Type: Spontaneous
  Country: US (occurrence: US)
  Receive Date: 20141028
  Receipt Date: 20141028
  Transmission Date: 20150529
  Serious: No
  Sender: FDA-Public Use
  Company Number: US-PFIZER INC-2014290761

PATIENT
  Age: 73 Year
  Sex: Female
  Weight: 36.74 kg

DRUGS (5)
  1. IBUPROFEN. [Concomitant]
     Active Substance: IBUPROFEN
     Indication: PAIN
     Dosage: 200 MG, AS NEEDED (WHENEVER HURT REAL BAD)
  2. NORCO [Concomitant]
     Active Substance: ACETAMINOPHEN\HYDROCODONE BITARTRATE
     Indication: PAIN
     Dosage: UNK, UP TO FOUR TO SIX A DAY, EVERY 4-6 HOURS
  3. LYRICA [Suspect]
     Active Substance: PREGABALIN
     Dosage: UNK
     Route: 048
     Dates: start: 2009, end: 2012
  4. LYRICA [Suspect]
     Active Substance: PREGABALIN
     Dosage: 75 MG, UNK
     Route: 048
     Dates: start: 20141016
  5. EQUATE [Concomitant]
     Active Substance: UNSPECIFIED INGREDIENT
     Indication: ARTHRALGIA
     Dosage: 1 DF, AS NEEDED (MAYBE EVERY 8 HOURS)

REACTIONS (4)
  - Therapeutic response unexpected [Unknown]
  - Impaired driving ability [Unknown]
  - Pre-existing condition improved [Unknown]
  - Hangover [Unknown]

NARRATIVE: CASE EVENT DATE: 2009
